FAERS Safety Report 19321627 (Version 1)
Quarter: 2021Q2

REPORT INFORMATION
  Report Type: Spontaneous
  Country: US (occurrence: US)
  Receive Date: 20210528
  Receipt Date: 20210528
  Transmission Date: 20210717
  Serious: Yes (Hospitalization)
  Sender: FDA-Public Use
  Company Number: None

PATIENT
  Age: 70 Year
  Sex: Male
  Weight: 135.4 kg

DRUGS (18)
  1. AMLODIPINE [Concomitant]
     Active Substance: AMLODIPINE BESYLATE
  2. CEPHALEXIN. [Concomitant]
     Active Substance: CEPHALEXIN
  3. VITAMIN D [Concomitant]
     Active Substance: VITAMIN D NOS
  4. FERROUS SULFATE. [Concomitant]
     Active Substance: FERROUS SULFATE
  5. LEVEMIR [Concomitant]
     Active Substance: INSULIN DETEMIR
  6. CALCITRIOL. [Concomitant]
     Active Substance: CALCITRIOL
  7. COLCHICINE. [Concomitant]
     Active Substance: COLCHICINE
  8. GABAPENTIN. [Concomitant]
     Active Substance: GABAPENTIN
  9. ROSUVASTATIN. [Concomitant]
     Active Substance: ROSUVASTATIN
  10. TORSEMIDE. [Concomitant]
     Active Substance: TORSEMIDE
  11. VENTOLIN [Concomitant]
     Active Substance: ALBUTEROL SULFATE
  12. ALLOPURINOL. [Concomitant]
     Active Substance: ALLOPURINOL
  13. JARDIANCE [Suspect]
     Active Substance: EMPAGLIFLOZIN
     Route: 048
     Dates: start: 20210120, end: 20210518
  14. CARVEDILOL. [Concomitant]
     Active Substance: CARVEDILOL
  15. OXYCODONE?ACETAMINOPHEN [Concomitant]
     Active Substance: ACETAMINOPHEN\OXYCODONE HYDROCHLORIDE
  16. LISINOPRIL. [Concomitant]
     Active Substance: LISINOPRIL
  17. CYCLOBENZAPRINE. [Concomitant]
     Active Substance: CYCLOBENZAPRINE
  18. TAMSULOSIN [Concomitant]
     Active Substance: TAMSULOSIN

REACTIONS (1)
  - Pancreatitis [None]

NARRATIVE: CASE EVENT DATE: 20210517
